FAERS Safety Report 18513776 (Version 1)
Quarter: 2020Q4

REPORT INFORMATION
  Report Type: Spontaneous
  Country: US (occurrence: US)
  Receive Date: 20201118
  Receipt Date: 20201118
  Transmission Date: 20210114
  Serious: No
  Sender: FDA-Public Use
  Company Number: US-MTPC-MTDA2020-0069902

PATIENT
  Sex: Female

DRUGS (2)
  1. RADICAVA [Suspect]
     Active Substance: EDARAVONE
     Dosage: 60 MILLIGRAM, QD FOR 10 DAYS OUT OF 14-DAY PERIODS, FOLLOWED BY 14-DAY DRUG-FREE PERIODS
     Route: 042
     Dates: end: 20201021
  2. RADICAVA [Suspect]
     Active Substance: EDARAVONE
     Indication: AMYOTROPHIC LATERAL SCLEROSIS
     Dosage: 60 MILLIGRAM OVER 60 MINUTES, QD FOR 14 DAYS FOLLOWED BY A 14-DAY DRUG-FREE PERIOD
     Route: 042
     Dates: start: 20200212

REACTIONS (3)
  - Drug ineffective [Unknown]
  - Disease progression [Unknown]
  - Stress [Unknown]
